FAERS Safety Report 11946202 (Version 3)
Quarter: 2016Q2

REPORT INFORMATION
  Report Type: Spontaneous
  Country: US (occurrence: US)
  Receive Date: 20160125
  Receipt Date: 20160421
  Transmission Date: 20160815
  Serious: No
  Sender: FDA-Public Use
  Company Number: US-AMGEN-USASP2016003814

PATIENT
  Age: 66 Year
  Sex: Female

DRUGS (1)
  1. REPATHA [Suspect]
     Active Substance: EVOLOCUMAB
     Indication: PRODUCT USED FOR UNKNOWN INDICATION
     Dosage: 140 MG, UNK
     Route: 065
     Dates: start: 20160107

REACTIONS (7)
  - Periorbital oedema [Unknown]
  - Burning sensation [Unknown]
  - Abdominal pain upper [Unknown]
  - Nausea [Unknown]
  - Peripheral swelling [Unknown]
  - Chills [Unknown]
  - Blood glucose increased [Unknown]
